FAERS Safety Report 7390105-8 (Version None)
Quarter: 2011Q2

REPORT INFORMATION
  Report Type: 
  Country: None (occurrence: None)
  Receive Date: 20110401
  Receipt Date: 20110324
  Transmission Date: 20111010
  Serious: Yes (Other)
  Sender: FDA-Public Use
  Company Number: DE-ASTRAZENECA-2011SE16866

PATIENT
  Age: 0 Year
  Sex: Male
  Weight: 2.7 kg

DRUGS (2)
  1. VENLAFAXINE HCL [Suspect]
     Indication: DEPRESSION
     Route: 064
     Dates: start: 20091101, end: 20100808
  2. SEROQUEL [Suspect]
     Indication: DEPRESSION
     Route: 064
     Dates: start: 20100601, end: 20100808

REACTIONS (1)
  - SMALL FOR DATES BABY [None]
